FAERS Safety Report 25612411 (Version 2)
Quarter: 2025Q3

REPORT INFORMATION
  Report Type: Report from Study
  Country: US (occurrence: US)
  Receive Date: 20250728
  Receipt Date: 20250904
  Transmission Date: 20251020
  Serious: Yes (Hospitalization)
  Sender: BAYER HEALTHCARE PHARMACEUTICALS INC.
  Company Number: US-BAYER-2025A099886

PATIENT
  Sex: Female

DRUGS (6)
  1. ADEMPAS [Suspect]
     Active Substance: RIOCIGUAT
     Indication: Pulmonary arterial hypertension
  2. ADEMPAS [Suspect]
     Active Substance: RIOCIGUAT
     Indication: Pulmonary arterial hypertension
     Dosage: 2.5 MG, TID
     Route: 048
     Dates: start: 202306
  3. OPSUMIT [Concomitant]
     Active Substance: MACITENTAN
  4. ORENITRAM [Concomitant]
     Active Substance: TREPROSTINIL
  5. ORENITRAM [Concomitant]
     Active Substance: TREPROSTINIL
  6. DEFERASIROX [Concomitant]
     Active Substance: DEFERASIROX

REACTIONS (5)
  - Abdominal pain upper [None]
  - Vomiting [None]
  - Diarrhoea [None]
  - Abdominal pain [None]
  - Nausea [None]
